FAERS Safety Report 24728532 (Version 1)
Quarter: 2024Q4

REPORT INFORMATION
  Report Type: Spontaneous
  Country: GB (occurrence: GB)
  Receive Date: 20241212
  Receipt Date: 20241212
  Transmission Date: 20250115
  Serious: Yes (Hospitalization, Other)
  Sender: ELI LILLY AND COMPANY
  Company Number: GB-MHRA-TPP44778754C9211227YC1733395187755

PATIENT
  Age: 89 Year
  Sex: Male
  Weight: 84 kg

DRUGS (10)
  1. TADALAFIL [Suspect]
     Active Substance: TADALAFIL
     Indication: Product used for unknown indication
     Dosage: 5 MG, DAILY (TAKE ONE ONCE DAILY - PRIVATE TREATMENT WILL NEED TO B..)
     Route: 048
     Dates: start: 20220411, end: 20241130
  2. ANUSOL [ZINC SULFATE] [Concomitant]
     Indication: Product used for unknown indication
     Dosage: UNK, APPLY TWICE A DAY AND EVERY TIME AFTER OPENING
     Route: 065
     Dates: start: 20241001, end: 20241008
  3. HONEY [Concomitant]
     Active Substance: HONEY
     Indication: Product used for unknown indication
     Dosage: UNK, APPLY TO BROKEN OR VULNERABLE SKIN AFTER PERSON
     Route: 065
     Dates: start: 20241122
  4. ZERODERM [Concomitant]
     Indication: Ill-defined disorder
     Dosage: UNK, APPLY TO THE AFFECTED AREA(S) TWICE A DAY OR IN...
     Route: 065
     Dates: start: 20230711
  5. ASPIRIN [Concomitant]
     Active Substance: ASPIRIN
     Indication: Product used for unknown indication
     Dosage: 75 MG, DAILY (TAKE ONE TABLET ONCE A DAY WITH OR AFTER FOOD 75MG ONCE A DAY)
     Route: 065
     Dates: start: 20240610
  6. ATORVASTATIN [Concomitant]
     Active Substance: ATORVASTATIN
     Indication: Product used for unknown indication
     Dosage: 40 MG, DAILY (TAKE ONE TABLET ONCE A DAY 40MG ONCE A DAY)
     Route: 065
     Dates: start: 20240610
  7. DUTASTERIDE [Concomitant]
     Active Substance: DUTASTERIDE
     Indication: Product used for unknown indication
     Dosage: 500 UG, DAILY (TAKE ONE CAPSULE ONCE A DAY 500MCG ONCE A DAY)
     Route: 065
     Dates: start: 20240610
  8. MACROGOL COMP [Concomitant]
     Indication: Product used for unknown indication
     Dosage: UNK, (TAKE ONE SACHET ONCE OR TWICE A DAY TO ACHIEVE)
     Route: 065
     Dates: start: 20240610
  9. UREA [Concomitant]
     Active Substance: UREA
     Indication: Product used for unknown indication
     Dosage: UNK, (APPLY DAILY AS DIRECTED BY DERMATOLOGIST)
     Route: 065
     Dates: start: 20240610
  10. LATANOPROST [Concomitant]
     Active Substance: LATANOPROST
     Indication: Product used for unknown indication
     Dosage: 2 DOSAGE FORM, DAILY (PUT ONE DROP INTO BOTH EYES EACH EVENING)
     Route: 047
     Dates: start: 20240819

REACTIONS (3)
  - Fall [Unknown]
  - Orthostatic hypotension [Unknown]
  - Dizziness [Unknown]

NARRATIVE: CASE EVENT DATE: 20241129
